FAERS Safety Report 8197659-2 (Version None)
Quarter: 2012Q1

REPORT INFORMATION
  Report Type: 
  Country: None (occurrence: None)
  Receive Date: 20120309
  Receipt Date: 20120229
  Transmission Date: 20120608
  Serious: Yes (Life-Threatening)
  Sender: FDA-Public Use
  Company Number: GB-PFIZER INC-2012062989

PATIENT
  Age: 49 Year
  Sex: Female
  Weight: 90 kg

DRUGS (4)
  1. CODEINE [Concomitant]
  2. OMEPRAZOLE [Concomitant]
  3. MORPHINE SULFATE [Suspect]
     Dosage: 10 MG, UNK
     Route: 048
     Dates: start: 20120207, end: 20120207
  4. TRAMADOL [Concomitant]
     Dosage: UNK
     Dates: end: 20120207

REACTIONS (1)
  - ANAPHYLACTIC REACTION [None]
